FAERS Safety Report 11145207 (Version 1)
Quarter: 2015Q2

REPORT INFORMATION
  Report Type: Spontaneous
  Country: US (occurrence: US)
  Receive Date: 20150528
  Receipt Date: 20150528
  Transmission Date: 20150821
  Serious: No
  Sender: FDA-Public Use
  Company Number: US-ELI_LILLY_AND_COMPANY-US201505009861

PATIENT
  Sex: Female

DRUGS (3)
  1. PROPANOLOL                         /00030001/ [Suspect]
     Active Substance: PROPRANOLOL HYDROCHLORIDE
  2. LEVEMIR [Concomitant]
     Active Substance: INSULIN DETEMIR
  3. INSULIN HUMAN [Suspect]
     Active Substance: INSULIN HUMAN
     Indication: TYPE 1 DIABETES MELLITUS
     Dosage: UNK UNK, PRN

REACTIONS (5)
  - Blood glucose decreased [Unknown]
  - Peripheral swelling [Unknown]
  - Alopecia [Unknown]
  - Hyperhidrosis [Unknown]
  - Fatigue [Unknown]
